FAERS Safety Report 7028392-8 (Version None)
Quarter: 2010Q4

REPORT INFORMATION
  Report Type: 
  Country: None (occurrence: None)
  Receive Date: 20101005
  Receipt Date: 20100927
  Transmission Date: 20110411
  Serious: Yes (Other)
  Sender: FDA-Public Use
  Company Number: DE-PFIZER INC-2010122698

PATIENT
  Age: 60 Year
  Sex: Female

DRUGS (2)
  1. ATORVASTATIN CALCIUM [Suspect]
     Dosage: 10 MG, UNK
     Route: 048
     Dates: start: 20081001, end: 20090701
  2. ATORVASTATIN CALCIUM [Suspect]
     Dosage: 20 MG, UNK
     Route: 048
     Dates: start: 20090701

REACTIONS (2)
  - DEAFNESS UNILATERAL [None]
  - HYPOACUSIS [None]
